FAERS Safety Report 14186247 (Version 2)
Quarter: 2017Q4

REPORT INFORMATION
  Report Type: Report from Study
  Country: GB (occurrence: GB)
  Receive Date: 20171114
  Receipt Date: 20171127
  Transmission Date: 20180321
  Serious: Yes (Hospitalization)
  Sender: FDA-Public Use
  Company Number: GB-NOVOPROD-571778

PATIENT
  Age: 71 Year
  Sex: Female

DRUGS (1)
  1. NORDITROPIN [Suspect]
     Active Substance: SOMATROPIN
     Indication: GROWTH HORMONE DEFICIENCY
     Dosage: 0.20 MG, QD
     Route: 058
     Dates: start: 201608

REACTIONS (3)
  - Hospitalisation [Unknown]
  - Overdose [Unknown]
  - Drug dose omission [Unknown]
